FAERS Safety Report 18299604 (Version 1)
Quarter: 2020Q3

REPORT INFORMATION
  Report Type: Spontaneous
  Country: US (occurrence: US)
  Receive Date: 20200922
  Receipt Date: 20200922
  Transmission Date: 20201103
  Serious: Yes (Hospitalization)
  Sender: FDA-Public Use
  Company Number: None

PATIENT
  Age: 20 Day
  Sex: Female

DRUGS (3)
  1. PULMOZYME [Suspect]
     Active Substance: DORNASE ALFA
     Indication: CYSTIC FIBROSIS
     Dosage: ?          OTHER DOSE:1MG/ LML;?
     Route: 055
     Dates: start: 20140225
  2. TRIKAFA [Concomitant]
  3. CAYSTO [Concomitant]

REACTIONS (1)
  - Hospitalisation [None]
